FAERS Safety Report 14756801 (Version 1)
Quarter: 2018Q2

REPORT INFORMATION
  Report Type: Spontaneous
  Country: CU (occurrence: CU)
  Receive Date: 20180413
  Receipt Date: 20180413
  Transmission Date: 20180711
  Serious: Yes (Other)
  Sender: FDA-Public Use
  Company Number: CU-AMGEN-CUBSP2018047625

PATIENT
  Age: 29 Year
  Sex: Female

DRUGS (2)
  1. PROLIA [Suspect]
     Active Substance: DENOSUMAB
     Indication: BONE CANCER
     Dosage: UNK
     Route: 065
     Dates: start: 201711
  2. PROLIA [Suspect]
     Active Substance: DENOSUMAB
     Indication: BONE GIANT CELL TUMOUR

REACTIONS (5)
  - Blood calcium decreased [Unknown]
  - Wrong drug administered [Unknown]
  - Therapeutic response unexpected [Unknown]
  - Pain in extremity [Unknown]
  - Arthralgia [Unknown]

NARRATIVE: CASE EVENT DATE: 201711
